FAERS Safety Report 21771172 (Version 1)
Quarter: 2022Q4

REPORT INFORMATION
  Report Type: Spontaneous
  Country: HK (occurrence: HK)
  Receive Date: 20221223
  Receipt Date: 20221223
  Transmission Date: 20230113
  Serious: Yes (Life-Threatening, Other)
  Sender: FDA-Public Use
  Company Number: HK-BAXTER-2022BAX019553

PATIENT
  Age: 6 Month
  Sex: Female

DRUGS (21)
  1. CYCLOPHOSPHAMIDE [Suspect]
     Active Substance: CYCLOPHOSPHAMIDE
     Indication: Malignant mesenchymoma metastatic
     Dosage: VDC
     Route: 065
  2. CYCLOPHOSPHAMIDE [Suspect]
     Active Substance: CYCLOPHOSPHAMIDE
     Indication: Metastases to lung
     Route: 065
  3. CYCLOPHOSPHAMIDE [Suspect]
     Active Substance: CYCLOPHOSPHAMIDE
     Indication: Metastases to skin
  4. CYCLOPHOSPHAMIDE [Suspect]
     Active Substance: CYCLOPHOSPHAMIDE
     Indication: Metastases to spine
  5. CYCLOPHOSPHAMIDE [Suspect]
     Active Substance: CYCLOPHOSPHAMIDE
     Indication: Metastases to muscle
  6. CYCLOPHOSPHAMIDE [Suspect]
     Active Substance: CYCLOPHOSPHAMIDE
     Indication: Metastases to lymph nodes
  7. VINCRISTINE [Suspect]
     Active Substance: VINCRISTINE
     Indication: Metastases to muscle
     Dosage: VDC
     Route: 065
  8. VINCRISTINE [Suspect]
     Active Substance: VINCRISTINE
     Indication: Metastases to lymph nodes
     Route: 065
  9. VINCRISTINE [Suspect]
     Active Substance: VINCRISTINE
     Indication: Metastases to lung
  10. VINCRISTINE [Suspect]
     Active Substance: VINCRISTINE
     Indication: Malignant mesenchymoma metastatic
  11. VINCRISTINE [Suspect]
     Active Substance: VINCRISTINE
     Indication: Metastases to skin
  12. VINCRISTINE [Suspect]
     Active Substance: VINCRISTINE
     Indication: Metastases to spine
  13. DOXORUBICIN [Suspect]
     Active Substance: DOXORUBICIN
     Indication: Metastases to muscle
     Dosage: VDC
     Route: 065
  14. DOXORUBICIN [Suspect]
     Active Substance: DOXORUBICIN
     Indication: Metastases to lymph nodes
     Route: 065
  15. DOXORUBICIN [Suspect]
     Active Substance: DOXORUBICIN
     Indication: Metastases to lung
  16. DOXORUBICIN [Suspect]
     Active Substance: DOXORUBICIN
     Indication: Malignant mesenchymoma metastatic
  17. DOXORUBICIN [Suspect]
     Active Substance: DOXORUBICIN
     Indication: Metastases to skin
  18. DOXORUBICIN [Suspect]
     Active Substance: DOXORUBICIN
     Indication: Metastases to spine
  19. TEMOZOLOMIDE [Concomitant]
     Active Substance: TEMOZOLOMIDE
     Indication: Malignant mesenchymoma metastatic
     Dosage: 5 MG/KG ON DAY 1, AND 2.5 MG/KG ON DAYS 2-5, AIT (21 CYCLES GIVEN TO-DATE)
     Route: 065
  20. APATINIB [Concomitant]
     Active Substance: APATINIB
     Indication: Malignant mesenchymoma metastatic
     Dosage: 15 MG/KG, AIT (21 CYCLES GIVEN TO-DATE)
     Route: 048
  21. IRINOTECAN [Concomitant]
     Active Substance: IRINOTECAN
     Indication: Malignant mesenchymoma metastatic
     Dosage: 1.75 MG/KG ON DAYS 1-5, AIT (21 CYCLES GIVEN TO-DATE)
     Route: 065

REACTIONS (2)
  - Cytopenia [Unknown]
  - Septic shock [Unknown]
